FAERS Safety Report 8956782 (Version 2)
Quarter: 2013Q1

REPORT INFORMATION
  Report Type: Spontaneous
  Country: JP (occurrence: JP)
  Receive Date: 20121211
  Receipt Date: 20130118
  Transmission Date: 20140127
  Serious: Yes (Hospitalization)
  Sender: FDA-Public Use
  Company Number: JP-PFIZER INC-2012310252

PATIENT
  Age: 70 Year
  Sex: Male

DRUGS (4)
  1. LYRICA [Suspect]
     Indication: PAIN
     Dosage: UNK
     Route: 048
     Dates: start: 20120530, end: 20120612
  2. LYRICA [Suspect]
     Dosage: 150 MG/DAY
     Route: 048
     Dates: start: 20120613, end: 201211
  3. LYRICA [Suspect]
     Dosage: 150 MG/DAY
     Route: 048
     Dates: start: 2012, end: 20121205
  4. TRAMAL [Concomitant]
     Indication: PAIN
     Dosage: UNK
     Route: 048
     Dates: start: 20121107, end: 20121205

REACTIONS (2)
  - Interstitial lung disease [Recovered/Resolved]
  - Nasopharyngitis [Unknown]
